FAERS Safety Report 8370576-0 (Version None)
Quarter: 2012Q2

REPORT INFORMATION
  Report Type: 
  Country: None (occurrence: None)
  Receive Date: 20120517
  Receipt Date: 20120503
  Transmission Date: 20120825
  Serious: Yes (Hospitalization)
  Sender: FDA-Public Use
  Company Number: JPI-P-021298

PATIENT
  Age: 42 Year
  Sex: Female

DRUGS (2)
  1. XYREM [Suspect]
     Indication: NARCOLEPSY
     Dosage: 6 GM (3 GM,2 IN 1 D),ORAL ; ORAL ; 9 GM (4.5 GM,2 IN 1 D),ORAL
     Route: 048
     Dates: start: 20120125
  2. XYREM [Suspect]
     Indication: NARCOLEPSY
     Dosage: 6 GM (3 GM,2 IN 1 D),ORAL ; ORAL ; 9 GM (4.5 GM,2 IN 1 D),ORAL
     Route: 048
     Dates: start: 20071231

REACTIONS (12)
  - POST PROCEDURAL COMPLICATION [None]
  - LIGAMENT SPRAIN [None]
  - SLEEP DISORDER [None]
  - CARDIAC OPERATION [None]
  - ABDOMINAL DISTENSION [None]
  - DRUG DOSE OMISSION [None]
  - UMBILICAL HERNIA [None]
  - THERAPEUTIC RESPONSE DECREASED [None]
  - ABDOMINAL PAIN UPPER [None]
  - VOMITING [None]
  - SOMNOLENCE [None]
  - ABDOMINAL HERNIA [None]
